FAERS Safety Report 9027101 (Version 1)
Quarter: 2013Q1

REPORT INFORMATION
  Report Type: Report from Study
  Country: AU (occurrence: AU)
  Receive Date: 20130123
  Receipt Date: 20130123
  Transmission Date: 20140127
  Serious: Yes (Hospitalization, Other)
  Sender: FDA-Public Use
  Company Number: AU-TEVA-382012USA

PATIENT
  Age: 67 Year
  Sex: Male
  Weight: 65 kg

DRUGS (5)
  1. TREANDA [Suspect]
     Indication: B-CELL LYMPHOMA
     Route: 042
     Dates: start: 20110511, end: 20110512
  2. BACTRIM [Concomitant]
     Route: 048
     Dates: start: 20111124
  3. NILSTAT [Concomitant]
     Route: 048
     Dates: start: 20110523, end: 20110620
  4. TIMENTIN [Concomitant]
     Route: 042
     Dates: start: 20110523, end: 20110526
  5. TIMENTIN [Concomitant]
     Route: 042
     Dates: start: 20110618, end: 20110619

REACTIONS (2)
  - Embolism [Not Recovered/Not Resolved]
  - Skin infection [Recovered/Resolved]
